FAERS Safety Report 4385833-2 (Version None)
Quarter: 2004Q2

REPORT INFORMATION
  Report Type: 
  Country: None (occurrence: None)
  Receive Date: 20040628
  Receipt Date: 20040623
  Transmission Date: 20050107
  Serious: Yes (Other)
  Sender: FDA-Public Use
  Company Number: JP-ROCHE-372049

PATIENT
  Age: 48 Year
  Sex: Male

DRUGS (2)
  1. VESANOID [Suspect]
     Indication: ACUTE PROMYELOCYTIC LEUKAEMIA
     Route: 048
     Dates: start: 20040316, end: 20040420
  2. VESANOID [Suspect]
     Route: 048
     Dates: start: 20040306, end: 20040315

REACTIONS (1)
  - BLOOD POTASSIUM INCREASED [None]
